FAERS Safety Report 9274391 (Version 1)
Quarter: 2013Q2

REPORT INFORMATION
  Report Type: Spontaneous
  Country: US (occurrence: US)
  Receive Date: 20130506
  Receipt Date: 20130506
  Transmission Date: 20140414
  Serious: Yes (Other)
  Sender: FDA-Public Use
  Company Number: US-GILEAD-2013-0074629

PATIENT
  Age: 22 Year
  Sex: Male

DRUGS (1)
  1. COMPLERA [Suspect]
     Indication: HIV TEST POSITIVE

REACTIONS (2)
  - Genotype drug resistance test positive [Unknown]
  - Drug ineffective [Unknown]
